FAERS Safety Report 5643112-7 (Version None)
Quarter: 2008Q1

REPORT INFORMATION
  Report Type: 
  Country: None (occurrence: None)
  Receive Date: 20080228
  Receipt Date: 20080225
  Transmission Date: 20080703
  Serious: Yes (Death)
  Sender: FDA-Public Use
  Company Number: US-BAXTER-2008BH001487

PATIENT
  Age: 50 Year
  Sex: Male

DRUGS (1)
  1. DIANEAL [Suspect]
     Indication: PERITONEAL DIALYSIS
     Dosage: DOSE UNIT:UNKNOWN
     Route: 033
     Dates: end: 20071224

REACTIONS (2)
  - CARDIAC FAILURE [None]
  - HEPATIC NEOPLASM MALIGNANT [None]
